FAERS Safety Report 13335454 (Version 1)
Quarter: 2017Q1

REPORT INFORMATION
  Report Type: Spontaneous
  Country: DK (occurrence: DK)
  Receive Date: 20170315
  Receipt Date: 20170315
  Transmission Date: 20170428
  Serious: Yes (Hospitalization, Other)
  Sender: FDA-Public Use
  Company Number: DK-ROCHE-1904679

PATIENT
  Age: 35 Year
  Sex: Female

DRUGS (1)
  1. HERCEPTIN [Suspect]
     Active Substance: TRASTUZUMAB
     Indication: BREAST CANCER
     Route: 065

REACTIONS (11)
  - Dose calculation error [Unknown]
  - Eye disorder [Unknown]
  - Dizziness [Unknown]
  - Dyspnoea [Unknown]
  - Visual impairment [Unknown]
  - Blood pressure decreased [Unknown]
  - Weight decreased [Unknown]
  - Overdose [Unknown]
  - Loss of consciousness [Unknown]
  - Medication error [Unknown]
  - Fatigue [Unknown]
